FAERS Safety Report 5590965-7 (Version None)
Quarter: 2008Q1

REPORT INFORMATION
  Report Type: 
  Country: None (occurrence: None)
  Receive Date: 20080115
  Receipt Date: 20080104
  Transmission Date: 20080703
  Serious: Yes (Other)
  Sender: FDA-Public Use
  Company Number: PHEH2007US13622

PATIENT
  Sex: Female
  Weight: 142.86 kg

DRUGS (6)
  1. ZELNORM [Suspect]
     Indication: CONSTIPATION
     Dosage: 12 MG, BID
     Route: 048
     Dates: start: 20051001, end: 20070501
  2. COUMADIN [Concomitant]
     Indication: COAGULOPATHY
     Dates: start: 20020101
  3. LOVENOX [Concomitant]
     Indication: COAGULOPATHY
     Dosage: UNK, UNK
     Dates: start: 20020101
  4. ADVAIR DISKUS 100/50 [Concomitant]
     Dosage: UNK, UNK
  5. PULMICORT [Concomitant]
     Dosage: UNK, UNK
  6. HUMAN GROWTH HORMONE, RECOMBINANT [Concomitant]

REACTIONS (7)
  - ARTHROPATHY [None]
  - BALANCE DISORDER [None]
  - DIZZINESS [None]
  - FALL [None]
  - LOSS OF CONSCIOUSNESS [None]
  - NAUSEA [None]
  - SPINAL DISORDER [None]
